FAERS Safety Report 22288235 (Version 1)
Quarter: 2023Q2

REPORT INFORMATION
  Report Type: Spontaneous
  Country: US (occurrence: US)
  Receive Date: 20230505
  Receipt Date: 20230505
  Transmission Date: 20230721
  Serious: Yes (Other)
  Sender: FDA-Public Use
  Company Number: US-drreddys-SPO/USA/23/0164550

PATIENT
  Age: 69 Year
  Sex: Female
  Weight: 81.8 kg

DRUGS (35)
  1. AZACITIDINE [Suspect]
     Active Substance: AZACITIDINE
     Indication: Acute myeloid leukaemia
     Dosage: DOSE: 75MG/M2; BODY WEIGHT: 91 KG; BSA: 1.88 M2 DAY 1-7
     Route: 042
     Dates: start: 20230131, end: 20230206
  2. AZACITIDINE [Suspect]
     Active Substance: AZACITIDINE
     Dosage: DOSE: 75MG/M2; BODY WEIGHT: 81.8 KG; BSA: 1.79 M2
     Route: 042
     Dates: start: 20230307, end: 20230310
  3. AZACITIDINE [Suspect]
     Active Substance: AZACITIDINE
     Dosage: DOSE: 75MG/M2; BODY WEIGHT: 81.8 KG; BSA: 1.79 M2
     Route: 042
     Dates: start: 20230313, end: 20230313
  4. AZACITIDINE [Suspect]
     Active Substance: AZACITIDINE
     Dosage: DOSE: 75MG/M2; BODY WEIGHT: 81.8 KG; BSA: 1.79 M2
     Route: 042
     Dates: start: 20230314, end: 20230314
  5. AZACITIDINE [Suspect]
     Active Substance: AZACITIDINE
     Dosage: DOSE: 75MG/M2; BODY WEIGHT: 81.8 KG; BSA: 1.79 M2
     Route: 042
     Dates: start: 20230315, end: 20230315
  6. GILTERITINIB [Suspect]
     Active Substance: GILTERITINIB
     Indication: Acute myeloid leukaemia
     Route: 048
     Dates: start: 20230307, end: 20230331
  7. GILTERITINIB [Suspect]
     Active Substance: GILTERITINIB
     Route: 048
     Dates: start: 20230131, end: 20230216
  8. VENETOCLAX [Suspect]
     Active Substance: VENETOCLAX
     Indication: Acute myeloid leukaemia
     Route: 048
     Dates: start: 20230131, end: 20230131
  9. VENETOCLAX [Suspect]
     Active Substance: VENETOCLAX
     Dosage: (STARTED VEN RAMP UP TO FULL DOSE OF 400MG)
     Route: 048
     Dates: start: 20230201, end: 20230201
  10. VENETOCLAX [Suspect]
     Active Substance: VENETOCLAX
     Dosage: (RAMP UP, SWITCHED FROM POSA TO MICAFUNGIN (DT TOXICITY)
     Route: 048
     Dates: start: 20230202, end: 20230202
  11. VENETOCLAX [Suspect]
     Active Substance: VENETOCLAX
     Dosage: (RAMP UP)
     Route: 048
     Dates: start: 20230203, end: 20230203
  12. VENETOCLAX [Suspect]
     Active Substance: VENETOCLAX
     Dosage: (RAMP UP)
     Route: 048
     Dates: start: 20230204, end: 20230204
  13. VENETOCLAX [Suspect]
     Active Substance: VENETOCLAX
     Dosage: (MODERATE CYP3A) OR PGP INHIBITOR
     Route: 048
     Dates: start: 20230206, end: 20230216
  14. VENETOCLAX [Suspect]
     Active Substance: VENETOCLAX
     Route: 048
     Dates: start: 20230307, end: 20230320
  15. SUMATRIPTAN SUCCINATE [Concomitant]
     Active Substance: SUMATRIPTAN SUCCINATE
     Indication: Product used for unknown indication
     Dates: start: 20230206
  16. POTASSIUM PHOSPHATE, MONOBASIC [Concomitant]
     Active Substance: POTASSIUM PHOSPHATE, MONOBASIC
     Indication: Product used for unknown indication
     Dates: start: 20230218, end: 20230410
  17. CARBOXYMETHYLCELLULOSE SODIUM [Concomitant]
     Active Substance: CARBOXYMETHYLCELLULOSE SODIUM
     Indication: Product used for unknown indication
  18. MELATONIN [Concomitant]
     Active Substance: MELATONIN
     Indication: Product used for unknown indication
     Dates: start: 20230212
  19. LEVAQUIN [Concomitant]
     Active Substance: LEVOFLOXACIN
     Indication: Product used for unknown indication
     Dates: start: 20230128
  20. LACTATED RINGERS SOLUTION [Concomitant]
     Active Substance: CALCIUM CHLORIDE\POTASSIUM CHLORIDE\SODIUM CHLORIDE\SODIUM LACTATE
     Indication: Product used for unknown indication
  21. SALINE [Concomitant]
     Active Substance: SODIUM CHLORIDE
     Indication: Product used for unknown indication
     Dates: start: 20230130
  22. DOCUSATE SODIUM [Concomitant]
     Active Substance: DOCUSATE SODIUM
     Indication: Product used for unknown indication
     Dates: start: 20230204
  23. CALCIUM GLUCONATE [Concomitant]
     Active Substance: CALCIUM GLUCONATE
     Indication: Product used for unknown indication
     Dates: start: 20230121
  24. ACYCLOVIR [Concomitant]
     Active Substance: ACYCLOVIR
     Indication: Product used for unknown indication
     Dates: start: 20230121
  25. ALTEPLASE [Concomitant]
     Active Substance: ALTEPLASE
     Indication: Product used for unknown indication
     Dates: start: 20230124
  26. SODIUM CHLORIDE [Concomitant]
     Active Substance: SODIUM CHLORIDE
     Indication: Product used for unknown indication
     Dates: start: 20230121
  27. POTASSIUM CHLORIDE [Concomitant]
     Active Substance: POTASSIUM CHLORIDE
     Indication: Product used for unknown indication
     Dates: start: 20220830
  28. ALBUMIN HUMAN [Concomitant]
     Active Substance: ALBUMIN HUMAN
     Indication: Product used for unknown indication
     Dates: start: 20230121
  29. SYNTHROID [Concomitant]
     Active Substance: LEVOTHYROXINE SODIUM
     Indication: Product used for unknown indication
     Dates: start: 20230122
  30. BENADRYL [Concomitant]
     Active Substance: DIPHENHYDRAMINE HYDROCHLORIDE
     Indication: Product used for unknown indication
     Dates: start: 20230126
  31. PROTONIX [Concomitant]
     Active Substance: PANTOPRAZOLE SODIUM
     Indication: Product used for unknown indication
     Dates: start: 20230121
  32. LIDOCAINE [Concomitant]
     Active Substance: LIDOCAINE
     Indication: Product used for unknown indication
     Dates: start: 20230122
  33. TRAMADOL [Concomitant]
     Active Substance: TRAMADOL
     Indication: Product used for unknown indication
  34. MIRALAX [Concomitant]
     Active Substance: POLYETHYLENE GLYCOL 3350
     Indication: Product used for unknown indication
     Dates: start: 20230205
  35. ACETAMINOPHEN [Concomitant]
     Active Substance: ACETAMINOPHEN
     Indication: Product used for unknown indication
     Dates: start: 20230206

REACTIONS (2)
  - Hypokalaemia [Recovered/Resolved]
  - Inappropriate schedule of product administration [Unknown]

NARRATIVE: CASE EVENT DATE: 20230307
